FAERS Safety Report 15761010 (Version 1)
Quarter: 2018Q4

REPORT INFORMATION
  Report Type: Spontaneous
  Country: US (occurrence: US)
  Receive Date: 20181226
  Receipt Date: 20181226
  Transmission Date: 20190205
  Serious: No
  Sender: FDA-Public Use
  Company Number: US-PFIZER INC-2018523255

PATIENT
  Age: 75 Year
  Sex: Female
  Weight: 105.23 kg

DRUGS (1)
  1. AROMASIN [Suspect]
     Active Substance: EXEMESTANE
     Indication: BREAST CANCER
     Dosage: 25MG TABLET ONCE A DAY BY MOUTH
     Route: 048
     Dates: start: 201809, end: 201811

REACTIONS (4)
  - Nausea [Recovering/Resolving]
  - Bone pain [Recovered/Resolved]
  - Influenza [Recovered/Resolved]
  - Memory impairment [Unknown]

NARRATIVE: CASE EVENT DATE: 201809
